FAERS Safety Report 20601512 (Version 1)
Quarter: 2022Q1

REPORT INFORMATION
  Report Type: Spontaneous
  Country: US (occurrence: None)
  Receive Date: 20220315
  Receipt Date: 20220315
  Transmission Date: 20220424
  Serious: Yes (Hospitalization)
  Sender: FDA-Public Use
  Company Number: None

PATIENT
  Age: 75 Year
  Sex: Male

DRUGS (16)
  1. SOTROVIMAB [Suspect]
     Active Substance: SOTROVIMAB
     Indication: COVID-19
     Dosage: FREQUENCY : ONCE;?
     Route: 042
     Dates: start: 20220302, end: 20220302
  2. acetaminophen (TYLENOL) 325 mg tablet [Concomitant]
  3. allopurinol (ZYLOPRIM) 100 mg tablet [Concomitant]
  4. aspirin 81 mg tablet [Concomitant]
  5. atorvastatin (LIPITOR) 10 mg tablet [Concomitant]
  6. CALCIUM CARBONATE (CALCIUM 500 ORAL) [Concomitant]
  7. cholecalciferol (VITAMIN D3) 1,000 unit (25 mcg) tablet [Concomitant]
  8. cinacalcet (SENSIPAR) 30 mg tablet [Concomitant]
  9. ferrous sulfate (FEROSUL) 325 mg (65 mg iron) tablet [Concomitant]
  10. hydroCHLOROthiazide (HYDRODIURIL) 25 mg tablet [Concomitant]
  11. losartan (COZAAR) 100 mg tablet [Concomitant]
  12. metoprolol tartrate (LOPRESSOR) 25 mg tablet [Concomitant]
  13. multivitamin (THERAGRAN) tablet [Concomitant]
  14. mycophenolate (CELLCEPT) 500 mg tablet [Concomitant]
  15. predniSONE (DELTASONE) 5 mg tablet [Concomitant]
  16. tacrolimus 1 mg tablet extended release 24 hr [Concomitant]

REACTIONS (5)
  - Acute kidney injury [None]
  - Complications of transplanted kidney [None]
  - Diarrhoea [None]
  - Hypophagia [None]
  - COVID-19 pneumonia [None]

NARRATIVE: CASE EVENT DATE: 20220307
